FAERS Safety Report 19175008 (Version 1)
Quarter: 2021Q2

REPORT INFORMATION
  Report Type: Other
  Country: CA (occurrence: CA)
  Receive Date: 20210424
  Receipt Date: 20210424
  Transmission Date: 20210717
  Serious: Yes (Other)
  Sender: FDA-Public Use
  Company Number: CA-CELLTRION INC.-2021CA005420

PATIENT

DRUGS (24)
  1. RITUXIMAB (UNKNOWN) [Suspect]
     Active Substance: RITUXIMAB
     Indication: IMMUNE THROMBOCYTOPENIA
     Dosage: UNK
     Route: 041
  2. ADVAGRAF [Concomitant]
     Active Substance: TACROLIMUS
     Dosage: 12 MILLIGRAM, 1 EVERY 1 DAYS
     Route: 048
  3. PROGRAF [Concomitant]
     Active Substance: TACROLIMUS
  4. TEVA DULOXETINE [Concomitant]
     Active Substance: DULOXETINE
     Dosage: 30 MILLIGRAM, 2 EVERY 1 DAYS
     Route: 048
  5. DOCUSATE SODIUM. [Concomitant]
     Active Substance: DOCUSATE SODIUM
     Dosage: 200 MILLIGRAM, 2 EVERY 1 DAY
     Route: 048
  6. CALCIUM CARBONATE/VITAMIN D3 [Concomitant]
     Active Substance: CALCIUM CARBONATE\CHOLECALCIFEROL
     Dosage: 500 MILLIGRAM, 2 EVERY 1 DAYS
     Route: 050
  7. KAYEXALATE [Concomitant]
     Active Substance: SODIUM POLYSTYRENE SULFONATE
     Dosage: 30 MILLIGRAM, 1 EVERY 1 DAYS
     Route: 048
  8. NABILONE [Concomitant]
     Active Substance: NABILONE
     Dosage: 1 MILLIGRAM, 1 EVERY 1 DAY
     Route: 048
  9. PANTOPRAZOLE [Concomitant]
     Active Substance: PANTOPRAZOLE
     Dosage: 40 MILLIGRAM, 1 EVERY 1 DAYS
     Route: 048
  10. CLONIDINE. [Concomitant]
     Active Substance: CLONIDINE
     Dosage: 0.05 MILLIGRAM, 3 EVERY 1 DAYS
     Route: 048
  11. SENNOSIDES. [Concomitant]
     Active Substance: SENNOSIDES
     Dosage: 8.6 MILLIGRAM, 2 EVERY 1 DAYS
     Route: 048
  12. SODIUM BICARBONATE. [Concomitant]
     Active Substance: SODIUM BICARBONATE
     Dosage: 500 MILLIGRAM, 2 EVERY 1 DAYS
     Route: 048
  13. TOPIRAMATE. [Concomitant]
     Active Substance: TOPIRAMATE
     Dosage: 75 MILLIGRAM, 1 EVERY 1 DAYS
     Route: 048
  14. VENLAFAXINE [Concomitant]
     Active Substance: VENLAFAXINE HYDROCHLORIDE
     Dosage: 37.5 MILLIGRAM, 1 EVERY 1 DAYS
     Route: 048
  15. MYCOPHENOLATE MOFETIL. [Suspect]
     Active Substance: MYCOPHENOLATE MOFETIL
     Indication: PRODUCT USED FOR UNKNOWN INDICATION
     Dosage: 1000 MILLIGRAM, 2 EVERY 1 DAYS
     Route: 048
  16. AMLODIPINE [Concomitant]
     Active Substance: AMLODIPINE BESYLATE
     Dosage: 10 MILLIGRAM, 1 EVERY 1 DAYS
     Route: 048
  17. LASIX [Concomitant]
     Active Substance: FUROSEMIDE
     Dosage: 20 MILLIGRAM, 1 EVERY 1 DAYS
     Route: 048
  18. MAGNESIUM [Concomitant]
     Active Substance: MAGNESIUM
     Dosage: 500 MILLIGRAM, 2 EVERY 1 DAYS
     Route: 048
  19. METOPROLOL. [Concomitant]
     Active Substance: METOPROLOL
     Dosage: 50 MILLIGRAM, 2 EVERY 1 DAYS
     Route: 048
  20. RISEDRONATE SODIUM. [Concomitant]
     Active Substance: RISEDRONATE SODIUM
     Dosage: 35 MILLIGRAM,11 EVERY 1 WEEKS
     Route: 048
  21. ACETAMINOPHEN. [Concomitant]
     Active Substance: ACETAMINOPHEN
     Dosage: 650 MILLIGRAM, 3 EVERY 1 DAYS
     Route: 048
  22. CLONIDINE. [Concomitant]
     Active Substance: CLONIDINE
     Dosage: 0.05 MILLIGRAM, 2 EVERY 1 DAYS
     Route: 048
  23. PRAMIPEXOLE DIHYDROCHLORIDE. [Concomitant]
     Active Substance: PRAMIPEXOLE DIHYDROCHLORIDE
     Dosage: 0.5 MILLIGRAM, 1 EVERY 1 DAYS
     Route: 048
  24. PREDNISONE. [Concomitant]
     Active Substance: PREDNISONE
     Dosage: 5 MILLIGRAM, 1 EVERY 1 DAYS
     Route: 048

REACTIONS (3)
  - Intentional product use issue [Unknown]
  - Off label use [Unknown]
  - Transplant rejection [Unknown]
